FAERS Safety Report 4288034-1 (Version None)
Quarter: 2004Q1

REPORT INFORMATION
  Report Type: 
  Country: None (occurrence: None)
  Receive Date: 20040202
  Receipt Date: 20030819
  Transmission Date: 20041129
  Serious: Yes (Hospitalization)
  Sender: FDA-Public Use
  Company Number: 137350USA

PATIENT
  Age: 48 Year
  Sex: Female

DRUGS (8)
  1. COPAXONE [Suspect]
     Indication: MULTIPLE SCLEROSIS
     Dosage: 20 MILLIGRAM DAILY SUBCUTANEOUS
     Route: 058
     Dates: start: 19980814
  2. BIRTH CONTROL [Concomitant]
  3. BACLOFEN [Concomitant]
  4. EFFEXOR [Concomitant]
  5. KLONOPIN [Concomitant]
  6. AMBIEN [Concomitant]
  7. LOVENOX [Concomitant]
  8. COUMADIN [Concomitant]

REACTIONS (2)
  - MULTIPLE SCLEROSIS RELAPSE [None]
  - PULMONARY EMBOLISM [None]
